FAERS Safety Report 13578329 (Version 2)
Quarter: 2017Q2

REPORT INFORMATION
  Report Type: Spontaneous
  Country: DK (occurrence: DK)
  Receive Date: 20170524
  Receipt Date: 20170531
  Transmission Date: 20170830
  Serious: Yes (Other)
  Sender: FDA-Public Use
  Company Number: DK-TEVA-769501ACC

PATIENT
  Age: 78 Year
  Sex: Female

DRUGS (16)
  1. ELDEPRYL [Interacting]
     Active Substance: SELEGILINE HYDROCHLORIDE
     Dosage: STRENGTH :5 MG (REDUCED TO 5 MG 5 DAYS AGO)
     Route: 048
  2. OMNIMIN [Concomitant]
     Dosage: 1 IN MORNING AND 1 IN EVENING
     Route: 065
  3. LOSARTAN. [Concomitant]
     Active Substance: LOSARTAN
     Indication: BLOOD PRESSURE MEASUREMENT
     Dosage: 100 MG/25 MG, IN MORNING
     Route: 065
  4. PANODIL [Concomitant]
     Active Substance: ACETAMINOPHEN
     Dosage: 2 IN MORNING AND 2 IN EVENING, SOMETIMES MORE
     Route: 065
  5. ELDEPRYL [Interacting]
     Active Substance: SELEGILINE HYDROCHLORIDE
     Indication: PARKINSON^S DISEASE
     Dosage: 10 MILLIGRAM DAILY;
     Route: 048
     Dates: start: 20160607, end: 20170109
  6. VESICARE [Interacting]
     Active Substance: SOLIFENACIN SUCCINATE
     Dosage: LAST 5 DAYS, HALF TABLET
     Dates: end: 20170109
  7. PANTOPRAZOLE [Concomitant]
     Active Substance: PANTOPRAZOLE
     Dosage: 1 IN MORNING
     Route: 065
  8. VITAMIN D [Concomitant]
     Active Substance: CHOLECALCIFEROL
     Dosage: STRENGTH: 85 MCG, IN MORNING
     Route: 065
  9. METOPROLOL. [Interacting]
     Active Substance: METOPROLOL
     Indication: BLOOD PRESSURE MEASUREMENT
     Dosage: STRENGTH: 50 MG, 1 IN MORNING AND 1 IN EVENING
     Route: 065
  10. MAGNESIUM [Concomitant]
     Active Substance: MAGNESIUM
     Indication: MUSCLE SPASMS
     Dosage: 1 AT 18 PM AND 2 AT 20 PM
     Route: 065
  11. SINEMET 12,5/50 [Concomitant]
     Dosage: STRENGTH: 12.5/50 MG, 2 EACH IN MORNING, LUNCH AND EVENING
     Route: 065
  12. SPIRIX [Concomitant]
     Active Substance: SPIRONOLACTONE
     Indication: BLOOD PRESSURE MEASUREMENT
     Dosage: STRENGTH: 25 MG, IN MORNING
     Route: 065
  13. VESICARE [Interacting]
     Active Substance: SOLIFENACIN SUCCINATE
     Dosage: STRENGTH: 10 MG, 1 AT 20 PM
     Route: 065
  14. METFORMIN [Suspect]
     Active Substance: METFORMIN HYDROCHLORIDE
     Indication: TYPE 2 DIABETES MELLITUS
     Dosage: STRENGTH: 500 MG, 2 IN MORNING, 2 IN EVENING
     Route: 065
  15. AMLODIPINE [Concomitant]
     Active Substance: AMLODIPINE BESYLATE
     Indication: BLOOD PRESSURE MEASUREMENT
     Dosage: STRENGTH: 5 MG, IN MORNING
     Route: 065
  16. VAGIFEM [Concomitant]
     Active Substance: ESTRADIOL
     Dosage: 1 ON WEDNESDAY AND SATURDAY
     Route: 065

REACTIONS (5)
  - Drug interaction [Unknown]
  - Knee operation [Unknown]
  - Dry mouth [Unknown]
  - Weight decreased [Unknown]
  - Decreased appetite [Unknown]

NARRATIVE: CASE EVENT DATE: 20160624
